FAERS Safety Report 15886903 (Version 1)
Quarter: 2019Q1

REPORT INFORMATION
  Report Type: Spontaneous
  Country: DK (occurrence: DK)
  Receive Date: 20190130
  Receipt Date: 20190130
  Transmission Date: 20190417
  Serious: Yes (Hospitalization)
  Sender: FDA-Public Use
  Company Number: DK-ROCHE-2253379

PATIENT
  Age: 65 Year
  Sex: Male

DRUGS (11)
  1. IRINOTECAN [Concomitant]
     Active Substance: IRINOTECAN
     Indication: NEOPLASM MALIGNANT
     Route: 042
     Dates: start: 20180815
  2. PREDNISOLONE. [Concomitant]
     Active Substance: PREDNISOLONE
     Indication: ADRENOCORTICAL STEROID THERAPY
     Route: 048
     Dates: start: 20180612
  3. ONDANSETRON [Concomitant]
     Active Substance: ONDANSETRON
     Indication: ADVERSE DRUG REACTION
     Route: 048
     Dates: start: 20170814
  4. TRAMADOL. [Concomitant]
     Active Substance: TRAMADOL
     Indication: PAIN
     Route: 048
     Dates: start: 20160902
  5. CANNABIDIOL [Concomitant]
     Active Substance: CANNABIDIOL
     Indication: PAIN
     Route: 048
     Dates: start: 20180131
  6. LANTUS SOLOSTAR [Concomitant]
     Active Substance: INSULIN GLARGINE
     Indication: DIABETES MELLITUS
     Route: 058
     Dates: start: 20180806
  7. MICROLAX (DENMARK) [Concomitant]
     Indication: CONSTIPATION
     Route: 054
     Dates: start: 20180815
  8. LACTULOSE. [Concomitant]
     Active Substance: LACTULOSE
     Indication: CONSTIPATION
     Route: 048
     Dates: start: 20180815
  9. AVASTIN [Suspect]
     Active Substance: BEVACIZUMAB
     Indication: BRAIN NEOPLASM MALIGNANT
     Route: 042
     Dates: start: 20180807
  10. DRONABINOL. [Concomitant]
     Active Substance: DRONABINOL
     Indication: NAUSEA
     Route: 048
     Dates: start: 20180131
  11. PANTOPRAZOLE SODIUM SESQUIHYDRATE [Concomitant]
     Active Substance: PANTOPRAZOLE SODIUM
     Indication: GASTROOESOPHAGEAL REFLUX DISEASE
     Route: 048
     Dates: start: 20180612

REACTIONS (5)
  - Brain oedema [Unknown]
  - Urinary incontinence [Unknown]
  - Cerebrovascular accident [Unknown]
  - Altered state of consciousness [Unknown]
  - Muscle twitching [Unknown]

NARRATIVE: CASE EVENT DATE: 201812
